FAERS Safety Report 8525987-7 (Version None)
Quarter: 2012Q3

REPORT INFORMATION
  Report Type: 
  Country: None (occurrence: None)
  Receive Date: 20120720
  Receipt Date: 20120706
  Transmission Date: 20120928
  Serious: Yes (Hospitalization)
  Sender: FDA-Public Use
  Company Number: CHPA2012US015165

PATIENT
  Age: 89 Year
  Sex: Female

DRUGS (2)
  1. PERDIEM OVERNIGHT RELIEF PILLS [Suspect]
     Dosage: 3 DF, QOD
     Route: 048
  2. PERDIEM OVERNIGHT RELIEF PILLS [Suspect]
     Indication: CONSTIPATION
     Dosage: 2 DF, QOD
     Route: 048

REACTIONS (4)
  - INCORRECT DOSE ADMINISTERED [None]
  - UPPER LIMB FRACTURE [None]
  - HIP FRACTURE [None]
  - CONSTIPATION [None]
